FAERS Safety Report 7159008-8 (Version None)
Quarter: 2010Q4

REPORT INFORMATION
  Report Type: 
  Country: None (occurrence: None)
  Receive Date: 20101214
  Receipt Date: 20101202
  Transmission Date: 20110411
  Serious: Yes (Hospitalization)
  Sender: FDA-Public Use
  Company Number: FR-PFIZER INC-2010170607

PATIENT
  Age: 81 Year
  Sex: Female

DRUGS (5)
  1. CORDARONE [Suspect]
     Indication: PAROXYSMAL ARRHYTHMIA
     Dosage: 200 MG DAILY FIVE DAYS PER WEEK
     Route: 048
     Dates: start: 20100301, end: 20101027
  2. CORDARONE [Suspect]
     Indication: ATRIAL FIBRILLATION
  3. PREVISCAN [Concomitant]
  4. ALDACTONE [Concomitant]
     Dosage: UNK
     Dates: start: 20100318, end: 20101017
  5. LOGIMAX [Concomitant]
     Dosage: UNK
     Dates: start: 20100318

REACTIONS (2)
  - HYPONATRAEMIA [None]
  - SCIATICA [None]
